FAERS Safety Report 23916034 (Version 1)
Quarter: 2024Q2

REPORT INFORMATION
  Report Type: Spontaneous
  Country: US (occurrence: None)
  Receive Date: 20240529
  Receipt Date: 20240529
  Transmission Date: 20240715
  Serious: Yes (Life-Threatening, Hospitalization)
  Sender: FDA-Public Use
  Company Number: None

PATIENT
  Age: 67 Year
  Sex: Male
  Weight: 73 kg

DRUGS (1)
  1. PHYTONADIONE [Suspect]
     Active Substance: PHYTONADIONE
     Indication: International normalised ratio increased
     Dosage: FREQUENCY : ONCE;?
     Route: 042
     Dates: start: 20240216, end: 20240216

REACTIONS (6)
  - Tachypnoea [None]
  - Agonal respiration [None]
  - Unresponsive to stimuli [None]
  - Glassy eyes [None]
  - Pulse abnormal [None]
  - Bronchial secretion retention [None]

NARRATIVE: CASE EVENT DATE: 20240216
